FAERS Safety Report 4335828-X (Version None)
Quarter: 2004Q2

REPORT INFORMATION
  Report Type: 
  Country: None (occurrence: None)
  Receive Date: 20040405
  Receipt Date: 20040324
  Transmission Date: 20050107
  Serious: No
  Sender: FDA-Public Use
  Company Number: 04P-028-0254702-00

PATIENT
  Age: 7 Year
  Sex: Male

DRUGS (2)
  1. DEPAKENE [Suspect]
     Dosage: SEE IMAGE
     Route: 048
  2. DEPAKENE [Suspect]

REACTIONS (1)
  - CONVULSION [None]
